FAERS Safety Report 21599060 (Version 2)
Quarter: 2022Q4

REPORT INFORMATION
  Report Type: Report from Study
  Country: JP (occurrence: JP)
  Receive Date: 20221115
  Receipt Date: 20221129
  Transmission Date: 20230112
  Serious: Yes (Other)
  Sender: FDA-Public Use
  Company Number: JP-TEVA-2022-JP-2826354

PATIENT

DRUGS (5)
  1. CARBOPLATIN [Suspect]
     Active Substance: CARBOPLATIN
     Indication: Hepatoblastoma
     Dosage: 80 MG/M2 DAILY; IN 24H IN CYCLE A1, ON DAY 1.
     Route: 041
  2. CARBOPLATIN [Suspect]
     Active Substance: CARBOPLATIN
     Dosage: 70 MG/M2 DAILY; ON DAYS 8, 15, 29, 36, 43, 57, AND 64 IN CYCLES A1 TO A3.
     Route: 041
  3. CARBOPLATIN [Suspect]
     Active Substance: CARBOPLATIN
     Dosage: ADMINISTERED TO MAINTAINED AREA UNDER THE CURVE AT 6.6 MG/ML/MIN PER DAY IN 1 H ON DAYS 1, 22, AND 4
     Route: 041
  4. DOXORUBICIN [Suspect]
     Active Substance: DOXORUBICIN
     Indication: Hepatoblastoma
     Dosage: 30 MG/M2 DAILY; IN 24H ON DAYS 8, 9, 36, 37, 57, AND 58 IN CYCLES A1 TO A3.
     Route: 042
  5. DOXORUBICIN [Suspect]
     Active Substance: DOXORUBICIN
     Dosage: 20 MG/M2 DAILY; IN 24 H ON DAYS 1, 2, 22, 23, 43 AND 44 IN CYCLE C.
     Route: 042

REACTIONS (1)
  - Hepatotoxicity [Unknown]
